FAERS Safety Report 25789649 (Version 1)
Quarter: 2025Q3

REPORT INFORMATION
  Report Type: Spontaneous
  Country: US (occurrence: US)
  Receive Date: 20250911
  Receipt Date: 20250911
  Transmission Date: 20251020
  Serious: Yes (Life-Threatening, Hospitalization, Other)
  Sender: AMNEAL
  Company Number: US-AMNEAL-2025-AMRX-03462

PATIENT
  Age: 31 Year
  Sex: Female

DRUGS (3)
  1. BACLOFEN [Suspect]
     Active Substance: BACLOFEN
     Indication: Muscle spasticity
     Route: 037
  2. BACLOFEN [Suspect]
     Active Substance: BACLOFEN
     Indication: Muscle spasticity
     Route: 048
  3. BACLOFEN [Suspect]
     Active Substance: BACLOFEN
     Route: 048

REACTIONS (8)
  - Vulvovaginal injury [Unknown]
  - Adverse event [Unknown]
  - Unevaluable event [Unknown]
  - Drug ineffective [Unknown]
  - Withdrawal syndrome [Unknown]
  - Tremor [Unknown]
  - Agitation [Unknown]
  - Product administration interrupted [Unknown]

NARRATIVE: CASE EVENT DATE: 20250731
